FAERS Safety Report 9331722 (Version 1)
Quarter: 2013Q2

REPORT INFORMATION
  Report Type: Spontaneous
  Country: GB (occurrence: GB)
  Receive Date: 20130605
  Receipt Date: 20130605
  Transmission Date: 20140414
  Serious: Yes (Other)
  Sender: FDA-Public Use
  Company Number: GB-ASTRAZENECA-2013SE37693

PATIENT
  Age: 70 Year
  Sex: Male
  Weight: 73.5 kg

DRUGS (7)
  1. ATENOLOL [Suspect]
     Indication: ATRIAL FIBRILLATION
     Route: 048
     Dates: start: 20130430
  2. ATENOLOL [Suspect]
     Indication: HEART RATE INCREASED
     Route: 048
     Dates: start: 20130430
  3. ASPIRIN [Concomitant]
  4. CURANAIL [Concomitant]
  5. PROSURIN XL [Concomitant]
  6. RAMIPRIL [Concomitant]
  7. SIMVASTATIN [Concomitant]

REACTIONS (12)
  - Abdominal distension [Not Recovered/Not Resolved]
  - Nasal dryness [Not Recovered/Not Resolved]
  - Dry throat [Not Recovered/Not Resolved]
  - Dyspnoea exertional [Not Recovered/Not Resolved]
  - Flatulence [Not Recovered/Not Resolved]
  - Weight increased [Not Recovered/Not Resolved]
  - Dyspnoea [Not Recovered/Not Resolved]
  - Insomnia [Not Recovered/Not Resolved]
  - Sluggishness [Unknown]
  - Abdominal pain upper [Not Recovered/Not Resolved]
  - Fatigue [Not Recovered/Not Resolved]
  - Diarrhoea [Not Recovered/Not Resolved]
